FAERS Safety Report 24348822 (Version 1)
Quarter: 2024Q3

REPORT INFORMATION
  Report Type: Spontaneous
  Country: US (occurrence: US)
  Receive Date: 20240923
  Receipt Date: 20240923
  Transmission Date: 20241017
  Serious: No
  Sender: SANDOZ
  Company Number: US-SANDOZ-SDZ2024US081872

PATIENT

DRUGS (3)
  1. COMBIPATCH [Suspect]
     Active Substance: ESTRADIOL\NORETHINDRONE ACETATE
     Dosage: 0.05/0.25 MG
     Route: 062
  2. COMBIPATCH [Suspect]
     Active Substance: ESTRADIOL\NORETHINDRONE ACETATE
     Indication: Product used for unknown indication
     Dosage: 0.05/0.25 MG
     Route: 062
  3. COMBIPATCH [Suspect]
     Active Substance: ESTRADIOL\NORETHINDRONE ACETATE
     Dosage: 0.05/0.25 MG
     Route: 062

REACTIONS (1)
  - Product storage error [Recovered/Resolved]
